FAERS Safety Report 8987543 (Version 4)
Quarter: 2013Q2

REPORT INFORMATION
  Report Type: Report from Study
  Country: US (occurrence: US)
  Receive Date: 20121227
  Receipt Date: 20130523
  Transmission Date: 20140414
  Serious: Yes (Other)
  Sender: FDA-Public Use
  Company Number: PHEH2012US025129

PATIENT
  Age: 52 Year
  Sex: Female

DRUGS (7)
  1. GILENYA [Suspect]
     Indication: MULTIPLE SCLEROSIS
     Dosage: 0.5 MG, QD
     Route: 048
     Dates: start: 201108
  2. DIOVAN HCT [Concomitant]
  3. CARVEDILOL [Concomitant]
     Dosage: 12.5 UKN, BID
  4. HYDRALAZINE [Concomitant]
     Dosage: 50 UKN, TID
  5. VITAMIN D [Concomitant]
     Dosage: 5000 IU, BID
  6. FLEXERIL [Concomitant]
  7. ANTIHYPERTENSIVE DRUGS [Concomitant]

REACTIONS (5)
  - Lateral medullary syndrome [Recovered/Resolved with Sequelae]
  - Vertigo [Recovering/Resolving]
  - Balance disorder [Unknown]
  - Coordination abnormal [Unknown]
  - Weight increased [Unknown]
